FAERS Safety Report 8125352-0 (Version None)
Quarter: 2012Q1

REPORT INFORMATION
  Report Type: 
  Country: None (occurrence: None)
  Receive Date: 20120209
  Receipt Date: 20120201
  Transmission Date: 20120608
  Serious: Yes (Other)
  Sender: FDA-Public Use
  Company Number: GR-GLAXOSMITHKLINE-A0965205A

PATIENT
  Sex: Male

DRUGS (18)
  1. VINCRISTINE [Suspect]
     Indication: HODGKIN'S DISEASE
     Route: 065
     Dates: start: 20000101, end: 20010801
  2. PROCARBAZINE HYDROCHLORIDE [Suspect]
     Indication: HODGKIN'S DISEASE
     Route: 065
     Dates: start: 20000101, end: 20010801
  3. PREDNISONE [Suspect]
     Indication: HODGKIN'S DISEASE
     Route: 065
     Dates: start: 20000101, end: 20010801
  4. CHLORMETHINE [Suspect]
     Indication: HODGKIN'S DISEASE
     Route: 065
     Dates: start: 20000101, end: 20010801
  5. DACARBAZINE [Suspect]
     Indication: HODGKIN'S DISEASE
     Route: 065
     Dates: start: 20000101, end: 20010801
  6. DEXAMETHASONE [Suspect]
     Indication: HODGKIN'S DISEASE
     Route: 065
     Dates: start: 20020101, end: 20020101
  7. CARMUSTINE [Suspect]
     Indication: STEM CELL TRANSPLANT
     Route: 065
     Dates: start: 20020501
  8. CYTARABINE [Suspect]
     Indication: STEM CELL TRANSPLANT
     Route: 065
     Dates: start: 20020501
  9. MELPHALAN HYDROCHLORIDE [Suspect]
     Indication: STEM CELL TRANSPLANT
     Route: 065
     Dates: start: 20020501
  10. CYCLOPHOSPHAMIDE [Suspect]
     Indication: HODGKIN'S DISEASE
     Route: 065
     Dates: start: 20000101, end: 20010801
  11. VINBLASTINE SULFATE [Suspect]
     Indication: HODGKIN'S DISEASE
     Route: 065
     Dates: start: 20000101, end: 20010801
  12. PREDNISOLONE [Suspect]
     Indication: HODGKIN'S DISEASE
     Route: 065
     Dates: start: 20000101, end: 20010801
  13. IFOSFAMIDE [Suspect]
     Indication: HODGKIN'S DISEASE
     Route: 065
     Dates: start: 20020101, end: 20020101
  14. RADIOTHERAPY [Suspect]
     Indication: HODGKIN'S DISEASE
     Dates: start: 20000101, end: 20010801
  15. DOXORUBICIN HCL [Suspect]
     Indication: HODGKIN'S DISEASE
     Route: 065
     Dates: start: 20000101, end: 20010801
  16. CISPLATIN [Suspect]
     Indication: HODGKIN'S DISEASE
     Route: 065
     Dates: start: 20020101, end: 20020101
  17. ETOPOSIDE [Suspect]
     Indication: HODGKIN'S DISEASE
     Route: 065
     Dates: start: 20020101, end: 20020101
  18. BLEOMYCIN [Suspect]
     Indication: HODGKIN'S DISEASE
     Route: 065
     Dates: start: 20000101, end: 20010801

REACTIONS (3)
  - REFRACTORY CYTOPENIA WITH MULTILINEAGE DYSPLASIA [None]
  - MYELODYSPLASTIC SYNDROME [None]
  - PANCYTOPENIA [None]
